FAERS Safety Report 9465302 (Version 2)
Quarter: 2013Q3

REPORT INFORMATION
  Report Type: Report from Study
  Country: US (occurrence: US)
  Receive Date: 20130820
  Receipt Date: 20130905
  Transmission Date: 20140515
  Serious: Yes (Other)
  Sender: FDA-Public Use
  Company Number: US-ROCHE-1264265

PATIENT
  Age: 64 Year
  Sex: Female
  Weight: 70.37 kg

DRUGS (1)
  1. LUCENTIS [Suspect]
     Indication: PRODUCT USED FOR UNKNOWN INDICATION
     Dosage: OD (RIGHT EYE).
     Route: 065
     Dates: start: 20110328, end: 20130422

REACTIONS (1)
  - Cerebrovascular accident [Unknown]
